FAERS Safety Report 5971575-6 (Version None)
Quarter: 2008Q4

REPORT INFORMATION
  Report Type: 
  Country: None (occurrence: None)
  Receive Date: 20081201
  Receipt Date: 20081120
  Transmission Date: 20090506
  Serious: No
  Sender: FDA-Public Use
  Company Number: US-JNJFOC-20081105417

PATIENT
  Sex: Male
  Weight: 113.4 kg

DRUGS (1)
  1. DURAGESIC-100 [Suspect]
     Indication: PAIN
     Dosage: 100UG/HR 2 PATCHES EVERY 72 HOURS
     Route: 062
     Dates: start: 20070101

REACTIONS (5)
  - DRUG ADMINISTRATION ERROR [None]
  - DRUG DOSE OMISSION [None]
  - HYPERHIDROSIS [None]
  - INADEQUATE ANALGESIA [None]
  - WRONG TECHNIQUE IN DRUG USAGE PROCESS [None]
